FAERS Safety Report 14661806 (Version 1)
Quarter: 2018Q1

REPORT INFORMATION
  Report Type: Spontaneous
  Country: AU (occurrence: US)
  Receive Date: 20180318
  Receipt Date: 20180318
  Transmission Date: 20180509
  Serious: Yes (Hospitalization)
  Sender: FDA-Public Use
  Company Number: None

PATIENT
  Age: 15 Year
  Sex: Male
  Weight: 68.96 kg

DRUGS (4)
  1. DAUNORUBICIN [Suspect]
     Active Substance: DAUNORUBICIN
     Dates: end: 20180313
  2. VINCRISTINE SULFATE. [Suspect]
     Active Substance: VINCRISTINE SULFATE
     Dates: end: 20180313
  3. CYTARABINE. [Suspect]
     Active Substance: CYTARABINE
     Dates: end: 20180313
  4. PREDNISONE. [Suspect]
     Active Substance: PREDNISONE
     Dates: end: 20180315

REACTIONS (2)
  - Haemolysis [None]
  - Disseminated intravascular coagulation [None]

NARRATIVE: CASE EVENT DATE: 20180315
